FAERS Safety Report 20833462 (Version 1)
Quarter: 2022Q2

REPORT INFORMATION
  Report Type: Spontaneous
  Country: NL (occurrence: NL)
  Receive Date: 20220516
  Receipt Date: 20220516
  Transmission Date: 20220721
  Serious: Yes (Death, Other)
  Sender: FDA-Public Use
  Company Number: NL-BAYER-2022P002072

PATIENT
  Age: 76 Year
  Sex: Female

DRUGS (1)
  1. ADEMPAS [Suspect]
     Active Substance: RIOCIGUAT
     Indication: Pulmonary arterial hypertension
     Dosage: 1.5 MG
     Route: 048
     Dates: start: 20210510, end: 20220505

REACTIONS (3)
  - Metastases to liver [None]
  - Gastrointestinal carcinoma [None]
  - Euthanasia [Fatal]

NARRATIVE: CASE EVENT DATE: 20220505
